FAERS Safety Report 8014258-3 (Version None)
Quarter: 2011Q4

REPORT INFORMATION
  Report Type: 
  Country: None (occurrence: None)
  Receive Date: 20111229
  Receipt Date: 20111104
  Transmission Date: 20120403
  Serious: Yes (Other)
  Sender: FDA-Public Use
  Company Number: JP-GLAXOSMITHKLINE-B0761053A

PATIENT
  Sex: Female

DRUGS (8)
  1. PREDNISOLONE [Concomitant]
     Indication: AUTOIMMUNE HEPATITIS
     Dosage: 10MG PER DAY
     Route: 048
  2. AKINETON [Concomitant]
     Indication: PROPHYLAXIS
     Dosage: 2MG PER DAY
     Route: 048
     Dates: start: 20110917, end: 20111101
  3. ABILIFY [Concomitant]
     Indication: RESTLESSNESS
     Dosage: 6MG PER DAY
     Route: 048
     Dates: start: 20110309, end: 20111101
  4. CYMBALTA [Concomitant]
     Indication: DEPRESSIVE SYMPTOM
     Route: 048
     Dates: start: 20110414, end: 20111101
  5. LAMICTAL [Suspect]
     Indication: BIPOLAR DISORDER
     Route: 048
     Dates: start: 20111001, end: 20111027
  6. UNKNOWN DRUG [Concomitant]
     Dosage: 10MG PER DAY
     Route: 065
  7. RISPERDAL [Concomitant]
     Dosage: 25MG PER DAY
     Route: 030
  8. LEXOTAN [Concomitant]
     Indication: ANXIETY
     Dosage: 2MG PER DAY
     Route: 048
     Dates: start: 20110308, end: 20111101

REACTIONS (11)
  - DRUG RASH WITH EOSINOPHILIA AND SYSTEMIC SYMPTOMS [None]
  - SWELLING [None]
  - LYMPHOCYTE PERCENTAGE DECREASED [None]
  - WHITE BLOOD CELL COUNT INCREASED [None]
  - RASH [None]
  - FACE OEDEMA [None]
  - TACHYCARDIA [None]
  - ASPARTATE AMINOTRANSFERASE INCREASED [None]
  - ERYTHEMA [None]
  - C-REACTIVE PROTEIN INCREASED [None]
  - NEUTROPHIL PERCENTAGE INCREASED [None]
